FAERS Safety Report 6062697-2 (Version None)
Quarter: 2009Q1

REPORT INFORMATION
  Report Type: 
  Country: None (occurrence: None)
  Receive Date: 20090203
  Receipt Date: 20090119
  Transmission Date: 20090719
  Serious: Yes (Hospitalization)
  Sender: FDA-Public Use
  Company Number: PHHO2007MX03795

PATIENT
  Age: 72 Year
  Sex: Female

DRUGS (5)
  1. DIOVAN [Suspect]
     Dosage: 80 MG, QD
     Route: 048
     Dates: start: 20051101, end: 20081101
  2. EXFORGE [Suspect]
     Indication: HYPERTENSION
     Dosage: UNK
     Dates: start: 20081101
  3. TENORMIN [Concomitant]
  4. MINIPRESS [Concomitant]
  5. EPIVAL [Concomitant]

REACTIONS (2)
  - OEDEMA [None]
  - PNEUMONIA [None]
